FAERS Safety Report 13765087 (Version 4)
Quarter: 2019Q4

REPORT INFORMATION
  Report Type: Report from Study
  Country: US (occurrence: US)
  Receive Date: 20170718
  Receipt Date: 20191101
  Transmission Date: 20200122
  Serious: Yes (Hospitalization, Other)
  Sender: FDA-Public Use
  Company Number: US-BRISTOL-MYERS SQUIBB COMPANY-BMS-2017-061069

PATIENT
  Age: 55 Year
  Sex: Female
  Weight: 43.5 kg

DRUGS (4)
  1. INCB24360 [Suspect]
     Active Substance: EPACADOSTAT
     Indication: NON-SMALL CELL LUNG CANCER
     Dosage: 300 MILLIGRAM, BID
     Route: 048
     Dates: start: 20160914, end: 20160928
  2. INCB24360 [Suspect]
     Active Substance: EPACADOSTAT
     Indication: PRODUCT USED FOR UNKNOWN INDICATION
     Dosage: 100 MG, QD
     Route: 048
     Dates: start: 20161005, end: 20170705
  3. NIVOLUMAB [Suspect]
     Active Substance: NIVOLUMAB
     Indication: PRODUCT USED FOR UNKNOWN INDICATION
     Dosage: 240 MILLIGRAM, Q2WK
     Route: 042
     Dates: end: 20170719
  4. NIVOLUMAB [Suspect]
     Active Substance: NIVOLUMAB
     Indication: NON-SMALL CELL LUNG CANCER
     Dosage: 240 MILLIGRAM, Q2WK
     Route: 042
     Dates: start: 20160914, end: 20170705

REACTIONS (4)
  - Fall [Recovered/Resolved]
  - Hypoxia [Recovered/Resolved]
  - Dyspnoea [Recovered/Resolved with Sequelae]
  - Dehydration [Recovered/Resolved]

NARRATIVE: CASE EVENT DATE: 20170625
